FAERS Safety Report 9305865 (Version 1)
Quarter: 2013Q2

REPORT INFORMATION
  Report Type: Spontaneous
  Country: US (occurrence: US)
  Receive Date: 20130523
  Receipt Date: 20130523
  Transmission Date: 20140414
  Serious: No
  Sender: FDA-Public Use
  Company Number: US-PFIZER INC-2013154393

PATIENT
  Sex: Male
  Weight: 90.7 kg

DRUGS (6)
  1. VIAGRA [Suspect]
     Indication: ERECTILE DYSFUNCTION
     Dosage: UNK
     Dates: start: 1999
  2. VIAGRA [Suspect]
     Dosage: 100 MG, AS NEEDED
     Dates: start: 201304
  3. METFORMIN HCL [Suspect]
     Indication: BLOOD GLUCOSE ABNORMAL
     Dosage: UNK
  4. SIMVASTATIN [Suspect]
     Indication: BLOOD CHOLESTEROL ABNORMAL
     Dosage: UNK
  5. TESTOSTERONE CIPIONATE [Suspect]
     Dosage: UNK
  6. TOPROL XL [Suspect]
     Indication: HYPERTENSION
     Dosage: 50 MG, 1X/DAY

REACTIONS (2)
  - Drug ineffective [Unknown]
  - Drug effect incomplete [Unknown]
